FAERS Safety Report 20373961 (Version 1)
Quarter: 2022Q1

REPORT INFORMATION
  Report Type: Spontaneous
  Country: US (occurrence: None)
  Receive Date: 20220124
  Receipt Date: 20220124
  Transmission Date: 20220423
  Serious: Yes (Hospitalization, Disabling)
  Sender: FDA-Public Use
  Company Number: None

PATIENT
  Age: 66 Year
  Sex: Male

DRUGS (7)
  1. TACROLIMUS [Suspect]
     Active Substance: TACROLIMUS
     Indication: Renal transplant
     Dosage: OTHER QUANTITY : 3MG, 4MG;?FREQUENCY : TWICE A DAY;?
     Route: 048
     Dates: start: 20210902
  2. PANTOPRAZOLE [Concomitant]
  3. ASPIRIN [Concomitant]
     Active Substance: ASPIRIN
  4. SULFAMETHOXAZOLE\TRIMETHOPRIM [Concomitant]
     Active Substance: SULFAMETHOXAZOLE\TRIMETHOPRIM
  5. PREDNISONE [Concomitant]
  6. VALGANCICLOVIR [Concomitant]
  7. DOCUSATE [Concomitant]
     Dates: start: 20210202

REACTIONS (3)
  - Clostridium difficile infection [None]
  - Sepsis [None]
  - Urinary tract infection [None]
